FAERS Safety Report 16200538 (Version 2)
Quarter: 2019Q2

REPORT INFORMATION
  Report Type: Report from Study
  Country: None (occurrence: GB)
  Receive Date: 20190416
  Receipt Date: 20190423
  Transmission Date: 20190711
  Serious: Yes (Hospitalization)
  Sender: FDA-Public Use
  Company Number: GB-ABBVIE-19S-167-2744910-00

PATIENT
  Sex: Male

DRUGS (1)
  1. DUODOPA [Suspect]
     Active Substance: CARBIDOPA\LEVODOPA
     Indication: PARKINSON^S DISEASE
     Dosage: 5MG/1ML?20MG/1ML?100ML CASSETTE?ONE CASSETTE A DAY
     Route: 050

REACTIONS (3)
  - Daydreaming [Unknown]
  - Hypoglycaemia [Unknown]
  - Weight decreased [Unknown]
